FAERS Safety Report 7899430-5 (Version None)
Quarter: 2011Q4

REPORT INFORMATION
  Report Type: 
  Country: None (occurrence: None)
  Receive Date: 20111107
  Receipt Date: 20110914
  Transmission Date: 20120403
  Serious: No
  Sender: FDA-Public Use
  Company Number: US-AMGEN-USASP2011047398

PATIENT
  Age: 48 Year
  Sex: Female

DRUGS (1)
  1. ENBREL [Suspect]
     Indication: PSORIATIC ARTHROPATHY
     Dosage: 50 MG, QWK
     Dates: start: 20110413

REACTIONS (7)
  - NASAL CONGESTION [None]
  - CHILLS [None]
  - PAIN [None]
  - FATIGUE [None]
  - UPPER RESPIRATORY TRACT CONGESTION [None]
  - FEELING HOT [None]
  - INSOMNIA [None]
